FAERS Safety Report 9888239 (Version 2)
Quarter: 2015Q1

REPORT INFORMATION
  Report Type: Spontaneous
  Country: DK (occurrence: DK)
  Receive Date: 20140211
  Receipt Date: 20150309
  Transmission Date: 20150721
  Serious: Yes (Hospitalization)
  Sender: FDA-Public Use
  Company Number: PHHY2014DK012152

PATIENT
  Age: 57 Year
  Sex: Male

DRUGS (7)
  1. DOLOL [Suspect]
     Active Substance: TRAMADOL
     Indication: PAIN
     Dosage: 50 MG, UNK
     Route: 048
  2. SUMATRIPTAN. [Suspect]
     Active Substance: SUMATRIPTAN
     Indication: PAIN
     Dosage: UNK
     Route: 065
  3. PANODIL [Suspect]
     Active Substance: ACETAMINOPHEN
     Indication: PAIN
     Dosage: UNK
     Route: 065
  4. IMOCLONE [Suspect]
     Active Substance: ZOPICLONE
     Indication: PAIN
     Dosage: 7.5 MG, UNK
     Route: 048
  5. DICLON [Suspect]
     Active Substance: DICLOFENAC SODIUM
     Indication: PAIN
     Dosage: UNK
     Route: 065
  6. MANDOLGIN RETARD [Suspect]
     Active Substance: TRAMADOL
     Indication: PAIN
     Dosage: UNK
     Route: 048
  7. BURANA [Suspect]
     Active Substance: IBUPROFEN
     Indication: PAIN
     Route: 048

REACTIONS (4)
  - Non-cardiac chest pain [Unknown]
  - Panic disorder [None]
  - Palpitations [Unknown]
  - Supraventricular tachycardia [Unknown]

NARRATIVE: CASE EVENT DATE: 20110713
